FAERS Safety Report 16250577 (Version 1)
Quarter: 2019Q2

REPORT INFORMATION
  Report Type: Spontaneous
  Country: US (occurrence: US)
  Receive Date: 20190326
  Receipt Date: 20190326
  Transmission Date: 20190711
  Serious: No
  Sender: FDA-Public Use
  Company Number: None

PATIENT
  Age: 10 Year
  Sex: Male

DRUGS (1)
  1. ATOMOXETINE  40MG [Suspect]
     Active Substance: ATOMOXETINE
     Indication: ATTENTION DEFICIT/HYPERACTIVITY DISORDER
     Route: 048
     Dates: start: 20180308

REACTIONS (8)
  - Agitation [None]
  - Anger [None]
  - Skin abrasion [None]
  - Frequent bowel movements [None]
  - Self-injurious ideation [None]
  - Product substitution issue [None]
  - Aggression [None]
  - Disturbance in attention [None]

NARRATIVE: CASE EVENT DATE: 20180323
